FAERS Safety Report 16290396 (Version 2)
Quarter: 2019Q2

REPORT INFORMATION
  Report Type: Report from Study
  Country: BR (occurrence: BR)
  Receive Date: 20190509
  Receipt Date: 20190516
  Transmission Date: 20190711
  Serious: Yes (Hospitalization)
  Sender: FDA-Public Use
  Company Number: BR-B.I. PHARMACEUTICALS,INC./RIDGEFIELD-2019-BI-020405

PATIENT
  Age: 58 Year
  Sex: Female
  Weight: 75 kg

DRUGS (9)
  1. MODURETIC 5-50 [Concomitant]
     Active Substance: AMILORIDE HYDROCHLORIDE\HYDROCHLOROTHIAZIDE
     Indication: DIURETIC THERAPY
     Route: 048
     Dates: start: 2014, end: 201812
  2. MICARDIS [Suspect]
     Active Substance: TELMISARTAN
     Indication: HYPERTENSION
     Route: 048
     Dates: start: 2014, end: 201812
  3. FIXA CAL [Concomitant]
     Active Substance: MINERALS\VITAMINS
     Indication: PROPHYLAXIS
     Dosage: STRENGTH: 1250MG/200IU; 1 TAB PER DAY
     Route: 048
     Dates: start: 201812
  4. ALENIA (BUDESONIDE; FORMOTEROL) [Concomitant]
     Active Substance: BUDESONIDE\FORMOTEROL FUMARATE
     Indication: ASTHMA
     Dosage: DOSE: 12/400 MICROGRAM
     Route: 055
     Dates: start: 2016
  5. MICARDIS [Suspect]
     Active Substance: TELMISARTAN
     Route: 048
     Dates: start: 201812
  6. SPIRIVA [Concomitant]
     Active Substance: TIOTROPIUM BROMIDE MONOHYDRATE
     Indication: ASTHMA
     Route: 055
     Dates: start: 2017
  7. PREDNISONA [Concomitant]
     Active Substance: PREDNISONE
     Indication: CUTANEOUS VASCULITIS
     Route: 048
     Dates: start: 2014
  8. FERRIN [Concomitant]
     Indication: ANAEMIA
     Route: 048
     Dates: start: 201812
  9. FIXA CAL [Concomitant]
     Active Substance: MINERALS\VITAMINS
     Indication: BONE DISORDER

REACTIONS (9)
  - Cutaneous vasculitis [Recovered/Resolved]
  - Weight decreased [Recovered/Resolved]
  - Muscle atrophy [Recovered/Resolved]
  - Cutaneous vasculitis [Recovered/Resolved]
  - Extremity necrosis [Recovered/Resolved]
  - Blood sodium increased [Recovered/Resolved]
  - Blood potassium increased [Recovered/Resolved]
  - Chest pain [Recovered/Resolved]
  - Limb injury [Recovered/Resolved]

NARRATIVE: CASE EVENT DATE: 201802
